FAERS Safety Report 8850317 (Version 1)
Quarter: 2012Q4

REPORT INFORMATION
  Report Type: 
  Country: JP (occurrence: JP)
  Receive Date: 20121019
  Receipt Date: 20121019
  Transmission Date: 20130627
  Serious: Yes (Life-Threatening, Hospitalization)
  Sender: FDA-Public Use
  Company Number: PHHY2012JP092848

PATIENT

DRUGS (1)
  1. AMPICILLIN SODIUM+SULBACTAM SODIUM [Suspect]
     Dosage: 1.5 g, UNK

REACTIONS (3)
  - Anaphylactic shock [Recovering/Resolving]
  - Blood pressure decreased [Recovering/Resolving]
  - Pulmonary embolism [Unknown]
